FAERS Safety Report 14834458 (Version 1)
Quarter: 2018Q2

REPORT INFORMATION
  Report Type: Spontaneous
  Country: US (occurrence: US)
  Receive Date: 20180501
  Receipt Date: 20180501
  Transmission Date: 20180711
  Serious: Yes (Hospitalization, Other)
  Sender: FDA-Public Use
  Company Number: US-ENDO PHARMACEUTICALS INC-2018-036037

PATIENT
  Age: 55 Year
  Sex: Male

DRUGS (10)
  1. PANTOPRAZOLE [Concomitant]
     Active Substance: PANTOPRAZOLE
  2. ETOMIDATE. [Concomitant]
     Active Substance: ETOMIDATE
     Indication: PNEUMONIA
     Route: 042
  3. ALLOPURINOL. [Concomitant]
     Active Substance: ALLOPURINOL
  4. LIDOCAINE HYDROCHLORIDE TOPICAL SOLUTION .04 [Suspect]
     Active Substance: LIDOCAINE HYDROCHLORIDE
     Indication: PNEUMONIA
     Dosage: UNK
     Route: 061
  5. CEFEPIME [Concomitant]
     Active Substance: CEFEPIME HYDROCHLORIDE
     Indication: PNEUMONIA
  6. ACYCLOVIR CAPSULES [Concomitant]
     Active Substance: ACYCLOVIR
  7. FLUCONAZOLE. [Concomitant]
     Active Substance: FLUCONAZOLE
  8. SUCCINYLCHOLINE                    /00057701/ [Concomitant]
     Active Substance: SUCCINYLCHOLINE
     Indication: PNEUMONIA
  9. CARFILZOMIB [Concomitant]
     Active Substance: CARFILZOMIB
     Indication: PLASMA CELL MYELOMA
  10. AZITHROMYCIN ANHYDROUS. [Concomitant]
     Active Substance: AZITHROMYCIN ANHYDROUS
     Indication: PNEUMONIA

REACTIONS (10)
  - Methaemoglobinaemia [Recovered/Resolved]
  - Hypoxia [None]
  - Stomatococcal infection [None]
  - Bacteraemia [None]
  - Blood pH decreased [None]
  - PCO2 decreased [None]
  - PO2 increased [None]
  - Condition aggravated [None]
  - Oxygen saturation decreased [None]
  - Septic shock [None]
